FAERS Safety Report 7872115 (Version 3)
Quarter: 2013Q4

REPORT INFORMATION
  Report Type: Report from Study
  Country: JP (occurrence: JP)
  Receive Date: 20110325
  Receipt Date: 20131108
  Transmission Date: 20140711
  Serious: Yes (Other)
  Sender: FDA-Public Use
  Company Number: JP-PFIZER INC-2011062209

PATIENT
  Age: 44 Year
  Sex: Male

DRUGS (2)
  1. PEGVISOMANT [Suspect]
     Indication: ACROMEGALY
     Dosage: 30 MG, 1X/DAY
     Route: 058
     Dates: start: 20080410, end: 20081205
  2. SANDOSTATIN [Concomitant]
     Indication: ACROMEGALY
     Dosage: UNK
     Route: 030
     Dates: end: 20081106

REACTIONS (1)
  - Pituitary tumour recurrent [Recovering/Resolving]
